FAERS Safety Report 20310329 (Version 24)
Quarter: 2022Q4

REPORT INFORMATION
  Report Type: Report from Study
  Country: CN (occurrence: None)
  Receive Date: 20220107
  Receipt Date: 20221128
  Transmission Date: 20230112
  Serious: Yes (Hospitalization)
  Sender: FDA-Public Use
  Company Number: CN-Eisai Medical Research-EC-2022-106357

PATIENT
  Age: 66 Year
  Sex: Female
  Weight: 67.2 kg

DRUGS (8)
  1. LENVATINIB [Suspect]
     Active Substance: LENVATINIB
     Indication: Renal cell carcinoma
     Route: 048
     Dates: start: 20211222, end: 20211222
  2. LENVATINIB [Suspect]
     Active Substance: LENVATINIB
     Route: 048
     Dates: start: 20220101, end: 20220101
  3. BELZUTIFAN [Suspect]
     Active Substance: BELZUTIFAN
     Indication: Renal cell carcinoma
     Route: 048
     Dates: start: 20211201, end: 20220102
  4. GLIQUIDONE [Concomitant]
     Active Substance: GLIQUIDONE
     Route: 048
     Dates: start: 202008
  5. ACARBOSE [Concomitant]
     Active Substance: ACARBOSE
     Dates: start: 202008
  6. KALLIDINOGENASE [Concomitant]
     Active Substance: KALLIDINOGENASE
     Dates: start: 202008
  7. HYDROCHLOROTHIAZIDE\IRBESARTAN [Concomitant]
     Active Substance: HYDROCHLOROTHIAZIDE\IRBESARTAN
     Dates: start: 202104
  8. METHYLCOBALAMIN [Concomitant]
     Active Substance: METHYLCOBALAMIN
     Dates: start: 202008

REACTIONS (2)
  - Transient ischaemic attack [Recovered/Resolved]
  - Anaemia [Recovered/Resolved]

NARRATIVE: CASE EVENT DATE: 20211208
